FAERS Safety Report 5927939-X (Version None)
Quarter: 2008Q4

REPORT INFORMATION
  Report Type: 
  Country: None (occurrence: None)
  Receive Date: 20081022
  Receipt Date: 20081022
  Transmission Date: 20090506
  Serious: Yes (Life-Threatening, Hospitalization)
  Sender: FDA-Public Use
  Company Number: None

PATIENT
  Age: 42 Year
  Sex: Female
  Weight: 63.5036 kg

DRUGS (1)
  1. LOESTRIN24 [Suspect]
     Indication: MENORRHAGIA
     Dosage: ONE MONTH TAKEN DAILY
     Dates: start: 20070819, end: 20070826

REACTIONS (1)
  - CEREBROVASCULAR ACCIDENT [None]
